FAERS Safety Report 26027063 (Version 2)
Quarter: 2025Q4

REPORT INFORMATION
  Report Type: Report from Study
  Country: US (occurrence: US)
  Receive Date: 20251111
  Receipt Date: 20251112
  Transmission Date: 20260119
  Serious: No
  Sender: MALLINCKRODT
  Company Number: US-MALLINCKRODT-MNK202506998

PATIENT
  Age: 85 Year
  Sex: Female

DRUGS (2)
  1. CORTICOTROPIN [Suspect]
     Active Substance: CORTICOTROPIN
     Indication: Sarcoidosis
     Dosage: 80 UNITS
     Route: 058
     Dates: start: 20251105
  2. PREDNISONE [Concomitant]
     Active Substance: PREDNISONE
     Dates: end: 20251104

REACTIONS (5)
  - Injection site haemorrhage [Unknown]
  - Injection site discharge [Unknown]
  - Insomnia [Unknown]
  - Fluid retention [Unknown]
  - Injection site bruising [Unknown]

NARRATIVE: CASE EVENT DATE: 20251101
